FAERS Safety Report 21995128 (Version 2)
Quarter: 2023Q2

REPORT INFORMATION
  Report Type: Spontaneous
  Country: BE (occurrence: BE)
  Receive Date: 20230215
  Receipt Date: 20230503
  Transmission Date: 20230721
  Serious: Yes (Other)
  Sender: FDA-Public Use
  Company Number: BE-AMGEN-BELSP2023024712

PATIENT

DRUGS (1)
  1. XGEVA [Suspect]
     Active Substance: DENOSUMAB
     Indication: Bone giant cell tumour
     Dosage: UNK
     Route: 065

REACTIONS (6)
  - Osteosarcoma [Unknown]
  - Bone giant cell tumour [Unknown]
  - Dental operation [Unknown]
  - Therapeutic response delayed [Unknown]
  - Therapy partial responder [Unknown]
  - Treatment failure [Unknown]
